FAERS Safety Report 9237597 (Version 1)
Quarter: 2013Q2

REPORT INFORMATION
  Report Type: Spontaneous
  Country: FR (occurrence: FR)
  Receive Date: 20130418
  Receipt Date: 20130418
  Transmission Date: 20140414
  Serious: Yes (Death)
  Sender: FDA-Public Use
  Company Number: FR-PFIZER INC-2013115485

PATIENT
  Age: 68 Year
  Sex: Male

DRUGS (7)
  1. ARACYTINE [Suspect]
     Indication: CENTRAL NERVOUS SYSTEM LYMPHOMA
     Dosage: UNK
     Route: 037
     Dates: start: 20130311, end: 20130311
  2. METHOTREXATE [Suspect]
     Indication: CENTRAL NERVOUS SYSTEM LYMPHOMA
     Dosage: UNK
     Dates: start: 20130311, end: 20130311
  3. CARBOPLATIN [Suspect]
     Indication: CENTRAL NERVOUS SYSTEM LYMPHOMA
     Dosage: UNK
     Dates: start: 20130311, end: 20130311
  4. MABTHERA [Suspect]
     Indication: CENTRAL NERVOUS SYSTEM LYMPHOMA
     Dosage: UNK
     Dates: start: 20130311, end: 20130311
  5. ETOPOSIDE-TEVA [Suspect]
     Indication: CENTRAL NERVOUS SYSTEM LYMPHOMA
     Dosage: UNK
     Dates: start: 20130311, end: 20130311
  6. HOLOXAN [Suspect]
     Indication: CENTRAL NERVOUS SYSTEM LYMPHOMA
     Dosage: UNK
     Dates: start: 20130311, end: 20130311
  7. LOXAPAC [Concomitant]
     Indication: AGITATION
     Dosage: UNK

REACTIONS (2)
  - Altered state of consciousness [Fatal]
  - Miosis [Unknown]
